FAERS Safety Report 14076403 (Version 1)
Quarter: 2017Q4

REPORT INFORMATION
  Report Type: Spontaneous
  Country: US (occurrence: US)
  Receive Date: 20171011
  Receipt Date: 20171011
  Transmission Date: 20180321
  Serious: No
  Sender: FDA-Public Use
  Company Number: US-BAYER-2017-189137

PATIENT
  Sex: Female

DRUGS (1)
  1. CLIMARA PRO [Suspect]
     Active Substance: ESTRADIOL\LEVONORGESTREL
     Indication: OSTEOPOROSIS PROPHYLAXIS
     Dosage: UNK
     Route: 062

REACTIONS (3)
  - Product physical issue [None]
  - Incorrect dose administered [None]
  - Device breakage [None]
